FAERS Safety Report 23114510 (Version 1)
Quarter: 2023Q4

REPORT INFORMATION
  Report Type: Spontaneous
  Country: US (occurrence: US)
  Receive Date: 20231027
  Receipt Date: 20231027
  Transmission Date: 20240110
  Serious: Yes (Death)
  Sender: FDA-Public Use
  Company Number: ENDB23-02655

PATIENT
  Age: 44 Year
  Sex: Female

DRUGS (5)
  1. OPANA ER [Suspect]
     Active Substance: OXYMORPHONE HYDROCHLORIDE
     Indication: Pain
     Dosage: 40 MG, TID
     Route: 048
  2. OPANA ER [Suspect]
     Active Substance: OXYMORPHONE HYDROCHLORIDE
     Dosage: UNK UNKNOWN, UNKNOWN (THEN THE DOSE WAS INCREASED (NOT FURTHER CLARIFIED))
     Route: 065
  3. OPANA ER [Suspect]
     Active Substance: OXYMORPHONE HYDROCHLORIDE
     Dosage: UNK UNKNOWN, UNKNOWN (84 TABLETS FOR 21 DAYS)
     Route: 065
     Dates: start: 20080317
  4. OPANA ER [Suspect]
     Active Substance: OXYMORPHONE HYDROCHLORIDE
     Dosage: UNK UNKNOWN, UNKNOWN (84 TABLETS FOR 28 DAYS)
     Route: 065
     Dates: start: 20080609
  5. OPANA ER [Suspect]
     Active Substance: OXYMORPHONE HYDROCHLORIDE
     Dosage: UNK UNKNOWN, UNKNOWN (84 TABLETS FOR 28 DAYS)
     Route: 065
     Dates: start: 20080707

REACTIONS (2)
  - Completed suicide [Fatal]
  - Product prescribing issue [Unknown]

NARRATIVE: CASE EVENT DATE: 20080724
